FAERS Safety Report 6945668-0 (Version None)
Quarter: 2010Q3

REPORT INFORMATION
  Report Type: 
  Country: None (occurrence: None)
  Receive Date: 20100827
  Receipt Date: 20100819
  Transmission Date: 20110219
  Serious: Yes (Other)
  Sender: FDA-Public Use
  Company Number: GXKR2010CA09320

PATIENT
  Age: 11 Year
  Sex: Female
  Weight: 35 kg

DRUGS (7)
  1. ONDANSETRON [Suspect]
     Indication: PROPHYLAXIS OF NAUSEA AND VOMITING
     Dosage: 0.1 MG/KG, UNK
     Route: 065
  2. SEVOFLURANE [Suspect]
     Indication: MAINTENANCE OF ANAESTHESIA
     Dosage: 4 % IN NITROUS OXIDE AND OXYGEN
  3. SEVOFLURANE [Suspect]
     Dosage: 2 %
  4. REMIFENTANIL [Concomitant]
     Dosage: 1.4 UG/KG (50 UG)
  5. ROCURONIUM BROMIDE [Concomitant]
     Dosage: 0.3 MG/KG (10 MG)
  6. DEXAMETHASONE [Concomitant]
     Indication: PROPHYLAXIS OF NAUSEA AND VOMITING
     Dosage: 0.1 MG/KG (3.5 MG)
  7. DIMENHYDRINATE [Concomitant]
     Indication: PROPHYLAXIS OF NAUSEA AND VOMITING
     Dosage: 0.4 MG/KG, UNK

REACTIONS (3)
  - ELECTROCARDIOGRAM QT PROLONGED [None]
  - VENTRICULAR EXTRASYSTOLES [None]
  - VENTRICULAR TACHYCARDIA [None]
